FAERS Safety Report 14327604 (Version 3)
Quarter: 2018Q1

REPORT INFORMATION
  Report Type: Spontaneous
  Country: DE (occurrence: DE)
  Receive Date: 20171227
  Receipt Date: 20180122
  Transmission Date: 20180509
  Serious: Yes (Other)
  Sender: FDA-Public Use
  Company Number: DE-CLINIGEN GROUP PLC/ CLINIGEN HEALTHCARE LTD-DE-CLGN-17-00429

PATIENT
  Age: 9 Year
  Sex: Male

DRUGS (5)
  1. IFOSFAMIDE. [Concomitant]
     Active Substance: IFOSFAMIDE
     Indication: NUT MIDLINE CARCINOMA
  2. ADRIAMYCIN [Concomitant]
     Active Substance: DOXORUBICIN HYDROCHLORIDE
     Indication: NUT MIDLINE CARCINOMA
  3. DEXRAZOXANE HCL [Suspect]
     Active Substance: DEXRAZOXANE HYDROCHLORIDE
     Indication: CARDIOVASCULAR EVENT PROPHYLAXIS
  4. CISPLATINUM [Concomitant]
     Active Substance: CISPLATIN
     Indication: NUT MIDLINE CARCINOMA
  5. VINCRISTINE [Concomitant]
     Active Substance: VINCRISTINE
     Indication: NUT MIDLINE CARCINOMA

REACTIONS (2)
  - Off label use [Unknown]
  - Ejection fraction decreased [Unknown]
